FAERS Safety Report 6767548-6 (Version None)
Quarter: 2010Q2

REPORT INFORMATION
  Report Type: 
  Country: None (occurrence: None)
  Receive Date: 20100614
  Receipt Date: 20100604
  Transmission Date: 20101027
  Serious: Yes (Other)
  Sender: FDA-Public Use
  Company Number: CA-BRISTOL-MYERS SQUIBB COMPANY-15138241

PATIENT
  Age: 83 Year
  Sex: Female

DRUGS (9)
  1. ORENCIA [Suspect]
     Indication: RHEUMATOID ARTHRITIS
     Dosage: RECEIVED 1 INFUSION
     Route: 042
     Dates: start: 20100528
  2. SYNTHROID [Concomitant]
  3. NABUMETONE [Concomitant]
     Dosage: APO-NABUMETONE
  4. CALCIUM CARBONATE [Concomitant]
  5. VITAMIN D [Concomitant]
  6. PLAQUENIL [Concomitant]
  7. ASPIRIN [Concomitant]
  8. PANTOPRAZOLE [Concomitant]
  9. GABAPENTIN [Concomitant]
     Dosage: PMS-GABAPENTIN

REACTIONS (3)
  - ASTHENIA [None]
  - HEADACHE [None]
  - OCULAR ICTERUS [None]
